FAERS Safety Report 24066706 (Version 1)
Quarter: 2024Q3

REPORT INFORMATION
  Report Type: Spontaneous
  Country: CN (occurrence: None)
  Receive Date: 20240709
  Receipt Date: 20240709
  Transmission Date: 20241016
  Serious: Yes (Other)
  Sender: ASTRAZENECA
  Company Number: 2024A154724

PATIENT
  Age: 15639 Day
  Sex: Male
  Weight: 82 kg

DRUGS (3)
  1. ROSUVASTATIN CALCIUM [Suspect]
     Active Substance: ROSUVASTATIN CALCIUM
     Indication: Left ventricular failure
     Route: 048
     Dates: start: 20240611, end: 20240617
  2. ROSUVASTATIN CALCIUM [Suspect]
     Active Substance: ROSUVASTATIN CALCIUM
     Indication: Pneumonia
     Route: 048
     Dates: start: 20240611, end: 20240617
  3. SILIBININ [Concomitant]
     Active Substance: SILIBININ
     Route: 048

REACTIONS (1)
  - Liver injury [Unknown]

NARRATIVE: CASE EVENT DATE: 20240617
